FAERS Safety Report 24592396 (Version 2)
Quarter: 2024Q4

REPORT INFORMATION
  Report Type: Report from Study
  Country: US (occurrence: US)
  Receive Date: 20241108
  Receipt Date: 20241126
  Transmission Date: 20250115
  Serious: Yes (Other)
  Sender: AUROBINDO
  Company Number: US-AUROBINDO-AUR-APL-2024-053475

PATIENT
  Age: 66 Year
  Sex: Female

DRUGS (1)
  1. CAPECITABINE [Suspect]
     Active Substance: CAPECITABINE
     Indication: Breast cancer
     Dosage: TWICE DAILY FOR 1 WEEK FOLLOWED BY A WEEK OFF AND THE PATTERN IS REPEATED.
     Route: 048

REACTIONS (3)
  - Cardiotoxicity [Recovered/Resolved]
  - Chest pain [Recovered/Resolved]
  - Disease progression [Unknown]
